FAERS Safety Report 19934806 (Version 2)
Quarter: 2021Q4

REPORT INFORMATION
  Report Type: Report from Study
  Country: US (occurrence: US)
  Receive Date: 20211008
  Receipt Date: 20211019
  Transmission Date: 20220303
  Serious: Yes (Hospitalization)
  Sender: FDA-Public Use
  Company Number: US-ROCHE-2924213

PATIENT
  Age: 73 Year
  Sex: Male
  Weight: 103.2 kg

DRUGS (6)
  1. ATEZOLIZUMAB [Suspect]
     Active Substance: ATEZOLIZUMAB
     Indication: Renal cell carcinoma
     Dosage: ON 15/FEB/2021, THE PATIENT RECEIVED THE MOST RECENT DOSE OF ATEZOLIZUMAB PRIOR TO THE?EVENT.
     Route: 042
     Dates: start: 20190710, end: 20210215
  2. CABOZANTINIB [Suspect]
     Active Substance: CABOZANTINIB
     Indication: Renal cell carcinoma
     Dosage: ON 13/SEP/2021, THE PATIENT RECEIVED THE MOST RECENT DOSE OF CABOZANTINIB PRIOR TO THE EVENT.
     Route: 048
     Dates: start: 20190710, end: 20210914
  3. PREDNISONE [Concomitant]
     Active Substance: PREDNISONE
  4. MUPIROCIN [Concomitant]
     Active Substance: MUPIROCIN
  5. TYLENOL [Concomitant]
     Active Substance: ACETAMINOPHEN
  6. MUCINEX [Concomitant]
     Active Substance: GUAIFENESIN

REACTIONS (2)
  - Upper respiratory tract infection [Not Recovered/Not Resolved]
  - COVID-19 [Not Recovered/Not Resolved]

NARRATIVE: CASE EVENT DATE: 20210913
